FAERS Safety Report 7177665 (Version 5)
Quarter: 2013Q4

REPORT INFORMATION
  Report Type: Spontaneous
  Country: US (occurrence: US)
  Receive Date: 20091116
  Receipt Date: 20131121
  Transmission Date: 20140711
  Serious: Yes (Hospitalization)
  Sender: FDA-Public Use
  Company Number: US-BAYER-200938767NA

PATIENT
  Age: 20 Year
  Sex: Female
  Weight: 62.73 kg

DRUGS (20)
  1. YAZ [Suspect]
     Indication: ORAL CONTRACEPTION
     Dosage: UNK
     Route: 048
     Dates: start: 20071229, end: 20080128
  2. YAZ [Suspect]
     Indication: ORAL CONTRACEPTION
     Dosage: UNK UNK, QD
     Route: 048
     Dates: end: 20090916
  3. VITAMIN C [Concomitant]
  4. DILAUDID [Concomitant]
  5. IBUPROFEN [Concomitant]
  6. FLAGYL [Concomitant]
  7. CIPROFLOXACIN [Concomitant]
  8. COMPAZINE [Concomitant]
  9. LEVAQUIN [Concomitant]
  10. PHENAZOPYRIDINE [Concomitant]
  11. INDOMETHACIN [Concomitant]
  12. PHENERGAN [Concomitant]
  13. TRAMADOL [Concomitant]
  14. URSODIOL [Concomitant]
  15. PERCOCET [Concomitant]
  16. METRONIDAZOLE [Concomitant]
  17. ZOFRAN [Concomitant]
  18. TORADOL [Concomitant]
     Dosage: 1 ML, UNK
     Route: 042
     Dates: start: 20080703
  19. FERROUS SULFATE [Concomitant]
     Dosage: 325 MG, QD
  20. NEXIUM [Concomitant]
     Dosage: 20 MG, QD

REACTIONS (6)
  - Cholecystitis chronic [Unknown]
  - Abdominal pain upper [Unknown]
  - Nausea [Unknown]
  - Flank pain [Unknown]
  - Vertigo [Unknown]
  - Biliary dyskinesia [None]
